FAERS Safety Report 7622213-8 (Version None)
Quarter: 2011Q3

REPORT INFORMATION
  Report Type: 
  Country: None (occurrence: None)
  Receive Date: 20110720
  Receipt Date: 20110531
  Transmission Date: 20111222
  Serious: Yes (Hospitalization, Other)
  Sender: FDA-Public Use
  Company Number: SG-BAYER-2011-047212

PATIENT
  Age: 47 Year
  Sex: Female

DRUGS (4)
  1. CALCIUM CARBONATE [Suspect]
     Dosage: UNK
     Dates: start: 20060101
  2. FLUOXETINE [Suspect]
     Indication: PRODUCT USED FOR UNKNOWN INDICATION
     Dosage: UNK
  3. ALENDRONATE SODIUM [Suspect]
     Indication: PRODUCT USED FOR UNKNOWN INDICATION
     Dosage: UNK
     Dates: start: 20060101
  4. NIFEDIPINE [Suspect]
     Indication: PRODUCT USED FOR UNKNOWN INDICATION

REACTIONS (3)
  - RASH MACULO-PAPULAR [None]
  - SYSTEMIC LUPUS ERYTHEMATOSUS [None]
  - TOXIC EPIDERMAL NECROLYSIS [None]
